FAERS Safety Report 7508753-0 (Version None)
Quarter: 2011Q2

REPORT INFORMATION
  Report Type: 
  Country: None (occurrence: None)
  Receive Date: 20110527
  Receipt Date: 20101220
  Transmission Date: 20111010
  Serious: No
  Sender: FDA-Public Use
  Company Number: A0900632A

PATIENT
  Age: 67 Year
  Sex: Male

DRUGS (5)
  1. BUSPIRONE HCL [Concomitant]
  2. VENTOLIN [Suspect]
     Dosage: 2PUFF VARIABLE DOSE
     Route: 055
     Dates: start: 19850101
  3. CLARITIN [Concomitant]
  4. CITALOPRAM HYDROBROMIDE [Concomitant]
  5. GUAIFENESIN [Concomitant]

REACTIONS (2)
  - DRUG INEFFECTIVE [None]
  - PRODUCT QUALITY ISSUE [None]
